FAERS Safety Report 18357599 (Version 4)
Quarter: 2021Q2

REPORT INFORMATION
  Report Type: Report from Study
  Country: None (occurrence: AU)
  Receive Date: 20201007
  Receipt Date: 20210519
  Transmission Date: 20210717
  Serious: Yes (Hospitalization, Other)
  Sender: FDA-Public Use
  Company Number: AU-ABBVIE-20P-008-3522652-00

PATIENT
  Age: 66 Year
  Sex: Male
  Weight: 150 kg

DRUGS (29)
  1. AZACITIDINE. [Suspect]
     Active Substance: AZACITIDINE
     Dosage: DAYS 1,2,3,4,5 AND 8,9 PER 28 DAY CYCLE
     Route: 058
     Dates: start: 20190902, end: 20191004
  2. DUODART [Concomitant]
     Active Substance: DUTASTERIDE\TAMSULOSIN
     Indication: DYSURIA
     Dosage: 0.5/0.4 MG
     Route: 048
     Dates: start: 20200707
  3. AZACITIDINE. [Suspect]
     Active Substance: AZACITIDINE
     Indication: MYELODYSPLASTIC SYNDROME
     Dosage: DAYS 1,2,3,4,5 AND 8,9 PER 28 DAY CYCLE
     Route: 058
     Dates: start: 20190218, end: 20190710
  4. PROTAPHANE [Concomitant]
     Active Substance: INSULIN HUMAN
     Indication: HYPERGLYCAEMIA
  5. NOVORAPID [Concomitant]
     Active Substance: INSULIN ASPART
     Indication: HYPERGLYCAEMIA
  6. ENDONE [Concomitant]
     Active Substance: OXYCODONE HYDROCHLORIDE
     Indication: GOUT
     Route: 048
     Dates: start: 20191209
  7. DOCUSATE?SENNA [Concomitant]
     Indication: CONSTIPATION PROPHYLAXIS
     Route: 048
     Dates: start: 20200630
  8. AZACITIDINE. [Suspect]
     Active Substance: AZACITIDINE
     Dosage: DAYS 1,2,3,4,5 AND 8,9 PER 28 DAY CYCLE
     Route: 058
     Dates: start: 20191008, end: 20191009
  9. AZACITIDINE. [Suspect]
     Active Substance: AZACITIDINE
     Dosage: DAYS 1,2,3,4,5 AND 8,9 PER 28 DAY CYCLE
     Route: 058
     Dates: start: 20200513, end: 20200807
  10. ROSUVASTATIN. [Concomitant]
     Active Substance: ROSUVASTATIN
     Indication: HYPERLIPIDAEMIA
     Route: 048
     Dates: start: 2015
  11. PERINDOPRIL [Concomitant]
     Active Substance: PERINDOPRIL
     Indication: BLOOD PRESSURE MEASUREMENT
     Route: 048
     Dates: start: 20190604, end: 202008
  12. NOVORAPID [Concomitant]
     Active Substance: INSULIN ASPART
     Indication: DIABETES MELLITUS
     Dosage: VARIABLE DOSES
     Route: 030
     Dates: start: 20191119
  13. GLICLAZIDE [Concomitant]
     Active Substance: GLICLAZIDE
     Indication: TYPE 2 DIABETES MELLITUS
     Route: 048
     Dates: start: 20191118, end: 20200812
  14. RYZODEG 70/30 [Concomitant]
     Active Substance: INSULIN ASPART\INSULIN DEGLUDEC
     Indication: TYPE 2 DIABETES MELLITUS
     Dosage: 70/30 NA
     Route: 058
     Dates: start: 20191118
  15. COLCHICINE. [Concomitant]
     Active Substance: COLCHICINE
     Indication: PAIN
     Dosage: 0.5?1 MG
     Route: 048
     Dates: start: 20190119
  16. AZACITIDINE. [Suspect]
     Active Substance: AZACITIDINE
     Dosage: DAYS 1,2,3,4,5 AND 8,9 PER 28 DAY CYCLE
     Route: 058
     Dates: start: 20191104, end: 20200224
  17. RESPRIM [Concomitant]
     Active Substance: SULFAMETHOXAZOLE\TRIMETHOPRIM
     Indication: ANTIFUNGAL PROPHYLAXIS
     Dosage: 400/80MG
     Route: 048
     Dates: start: 20100218
  18. METFORMIN [Concomitant]
     Active Substance: METFORMIN HYDROCHLORIDE
     Indication: TYPE 2 DIABETES MELLITUS
     Route: 048
     Dates: start: 201909, end: 202008
  19. PARACETAMOL [Concomitant]
     Active Substance: ACETAMINOPHEN
     Indication: ARTHRITIS
     Route: 048
     Dates: start: 20191209
  20. PREDNISONE. [Concomitant]
     Active Substance: PREDNISONE
     Indication: ARTHRALGIA
     Dosage: 10?50 MG
     Route: 048
     Dates: start: 20200101
  21. VENETOCLAX. [Suspect]
     Active Substance: VENETOCLAX
     Indication: MYELODYSPLASTIC SYNDROME
     Dosage: DAYS 1?14 PER 28 DAY CYCLE
     Route: 048
     Dates: start: 20190218, end: 20200810
  22. VITAMIN D [Concomitant]
     Active Substance: VITAMIN D NOS
     Indication: VITAMIN SUPPLEMENTATION
     Route: 048
     Dates: start: 201908
  23. INDOMETHACIN. [Concomitant]
     Active Substance: INDOMETHACIN
     Route: 048
     Dates: start: 20191112
  24. PROTAPHANE [Concomitant]
     Active Substance: INSULIN HUMAN
     Indication: DIABETES MELLITUS
     Dosage: VARIABLE DOSES
     Route: 030
     Dates: start: 20191119
  25. ULTIBRO [Concomitant]
     Active Substance: GLYCOPYRRONIUM\INDACATEROL
     Indication: CHRONIC OBSTRUCTIVE PULMONARY DISEASE
     Dosage: 110/50UG
     Route: 055
     Dates: start: 201506
  26. INDOMETHACIN. [Concomitant]
     Active Substance: INDOMETHACIN
     Indication: GOUT
     Route: 048
     Dates: start: 20191112
  27. ALLOPURINOL. [Concomitant]
     Active Substance: ALLOPURINOL
     Indication: GOUT
     Route: 048
     Dates: start: 202001
  28. AMPHOTERICIN B LIPOSOMAL (AMBISOME) [Concomitant]
     Indication: ANTIFUNGAL PROPHYLAXIS
     Route: 042
     Dates: start: 20200513, end: 20200826
  29. MAXOLON [Concomitant]
     Active Substance: METOCLOPRAMIDE HYDROCHLORIDE
     Indication: PROPHYLAXIS OF NAUSEA AND VOMITING
     Dosage: ON DAYS 1?5 AND DAYS 8?9 OF EACH CYCLE PLUS TDS PRN
     Route: 048
     Dates: start: 20190211

REACTIONS (3)
  - Febrile neutropenia [Recovered/Resolved]
  - Lung abscess [Recovered/Resolved]
  - Anal fistula [Recovered/Resolved]

NARRATIVE: CASE EVENT DATE: 20200812
